FAERS Safety Report 17733567 (Version 1)
Quarter: 2020Q2

REPORT INFORMATION
  Report Type: Spontaneous
  Country: US (occurrence: US)
  Receive Date: 20200501
  Receipt Date: 20200501
  Transmission Date: 20200714
  Serious: Yes (Death, Hospitalization)
  Sender: FDA-Public Use
  Company Number: US-CADILA HEALTHCARE LIMITED-US-ZYDUS-050005

PATIENT
  Age: 62 Year

DRUGS (1)
  1. BOSENTAN 125 MG TABLETS [Suspect]
     Active Substance: BOSENTAN
     Indication: PULMONARY ARTERIAL HYPERTENSION
     Dosage: 125 MILLIGRAM, BID
     Route: 048
     Dates: start: 20190823, end: 20200319

REACTIONS (6)
  - Product dose omission [Recovered/Resolved]
  - Drug ineffective [Recovered/Resolved]
  - Respiratory failure [Fatal]
  - Respiratory tract infection fungal [Fatal]
  - Myocardial infarction [Fatal]
  - Death [Fatal]

NARRATIVE: CASE EVENT DATE: 202003
